FAERS Safety Report 4776626-2 (Version None)
Quarter: 2005Q3

REPORT INFORMATION
  Report Type: 
  Country: None (occurrence: None)
  Receive Date: 20050923
  Receipt Date: 20050912
  Transmission Date: 20060218
  Serious: Yes (Life-Threatening, Hospitalization)
  Sender: FDA-Public Use
  Company Number: US-ABBOTT-05P-163-0310759-00

PATIENT
  Sex: Female

DRUGS (2)
  1. OMNICEF SUSPENSION [Suspect]
     Indication: OTITIS MEDIA ACUTE
     Route: 048
     Dates: start: 20050716
  2. OMNICEF SUSPENSION [Suspect]
     Indication: PYREXIA

REACTIONS (3)
  - DYSPHAGIA [None]
  - LUNG INFECTION PSEUDOMONAL [None]
  - STEVENS-JOHNSON SYNDROME [None]
